FAERS Safety Report 21805690 (Version 2)
Quarter: 2023Q2

REPORT INFORMATION
  Report Type: Report from Study
  Country: BR (occurrence: BR)
  Receive Date: 20230102
  Receipt Date: 20230427
  Transmission Date: 20230721
  Serious: Yes (Hospitalization)
  Sender: FDA-Public Use
  Company Number: BR-SERVIER DO BRASIL-S22012857

PATIENT

DRUGS (8)
  1. PEGASPARGASE [Suspect]
     Active Substance: PEGASPARGASE
     Indication: Acute lymphocytic leukaemia
     Dosage: 3100 IU, ONE DOSE
     Route: 065
     Dates: start: 20220820, end: 20220820
  2. PEGASPARGASE [Suspect]
     Active Substance: PEGASPARGASE
     Dosage: 2500 U/M2 (3750 U), D1, D6, D21, D42
     Route: 065
     Dates: start: 20220926, end: 20220926
  3. DEXAMETHASONE [Suspect]
     Active Substance: DEXAMETHASONE
     Indication: Acute lymphocytic leukaemia
     Dosage: UNK
     Route: 065
     Dates: start: 20220927
  4. VINCRISTINE [Suspect]
     Active Substance: VINCRISTINE
     Indication: Acute lymphocytic leukaemia
     Dosage: UNK
     Route: 065
     Dates: start: 20220927
  5. DOXORUBICIN [Suspect]
     Active Substance: DOXORUBICIN
     Indication: Acute lymphocytic leukaemia
     Dosage: UNK
     Route: 065
     Dates: start: 20220927
  6. MERCAPTOPURINE [Suspect]
     Active Substance: MERCAPTOPURINE
     Indication: Acute lymphocytic leukaemia
     Dosage: UNK
     Route: 065
     Dates: start: 20220927
  7. MERCAPTOPURINE [Suspect]
     Active Substance: MERCAPTOPURINE
     Dosage: 75 MG/M2
     Route: 065
     Dates: start: 20221003
  8. METHOTREXATE [Suspect]
     Active Substance: METHOTREXATE
     Indication: Acute lymphocytic leukaemia
     Dosage: 40 MG/M2, WEEK 2 OF MAINTENANCE 1
     Route: 065
     Dates: start: 20221003

REACTIONS (3)
  - Pancreatitis [Recovered/Resolved]
  - Febrile neutropenia [Recovered/Resolved]
  - Candida infection [Recovered/Resolved]

NARRATIVE: CASE EVENT DATE: 20221009
